FAERS Safety Report 18083778 (Version 1)
Quarter: 2020Q3

REPORT INFORMATION
  Report Type: Spontaneous
  Country: DE (occurrence: DE)
  Receive Date: 20200729
  Receipt Date: 20200729
  Transmission Date: 20201103
  Serious: No
  Sender: FDA-Public Use
  Company Number: DE-ALKEM LABORATORIES LIMITED-DE-ALKEM-2019-09203

PATIENT
  Age: 62 Year
  Sex: Female

DRUGS (1)
  1. CEFUROXIME AXETIL. [Suspect]
     Active Substance: CEFUROXIME AXETIL
     Indication: PNEUMONIA
     Dosage: UNK, 550
     Route: 065
     Dates: start: 20190318

REACTIONS (9)
  - Pruritus [Recovering/Resolving]
  - Swelling face [Recovering/Resolving]
  - Eye pruritus [Unknown]
  - Eye irritation [Unknown]
  - Aphonia [Recovering/Resolving]
  - Erythema [Unknown]
  - Hypersensitivity [Unknown]
  - Lacrimation increased [Unknown]
  - Lip swelling [Recovering/Resolving]

NARRATIVE: CASE EVENT DATE: 20190318
